FAERS Safety Report 9498431 (Version 1)
Quarter: 2013Q3

REPORT INFORMATION
  Report Type: Spontaneous
  Country: US (occurrence: None)
  Receive Date: 20130903
  Receipt Date: 20130903
  Transmission Date: 20140515
  Serious: No
  Sender: FDA-Public Use
  Company Number: None

PATIENT
  Age: 32 Year
  Sex: Female

DRUGS (1)
  1. BUPIVICAINE [Suspect]
     Indication: SPINAL ANAESTHESIA
     Dates: start: 20130720

REACTIONS (1)
  - Drug effect decreased [None]
